FAERS Safety Report 5422892-X (Version None)
Quarter: 2007Q3

REPORT INFORMATION
  Report Type: 
  Country: None (occurrence: None)
  Receive Date: 20070820
  Receipt Date: 20070809
  Transmission Date: 20080115
  Serious: Yes (Hospitalization)
  Sender: FDA-Public Use
  Company Number: GXKR2007CH06846

PATIENT
  Age: 75 Year
  Sex: 0
  Weight: 86.1 kg

DRUGS (5)
  1. ECOFENAC (NGX)(DICLOFENAC) UNKNOWN [Suspect]
     Indication: BACK PAIN
     Dosage: 75 MG, 1.2X/DAY PRN, ORAL
     Route: 048
     Dates: end: 20070621
  2. ASPIRIN [Suspect]
     Indication: HYPERTENSION
     Dosage: 100 MG, QD, ORAL
     Route: 048
     Dates: end: 20070621
  3. MUCOFOR (ERDOSTEINE) [Concomitant]
  4. ZOLPIDEM TARTRATE [Concomitant]
  5. NEXIUM [Concomitant]

REACTIONS (6)
  - ABDOMINAL PAIN LOWER [None]
  - ABDOMINAL PAIN UPPER [None]
  - DIVERTICULITIS [None]
  - GASTROINTESTINAL HAEMORRHAGE [None]
  - RECTAL HAEMORRHAGE [None]
  - REFLUX OESOPHAGITIS [None]
